FAERS Safety Report 4645867-7 (Version None)
Quarter: 2005Q2

REPORT INFORMATION
  Report Type: 
  Country: None (occurrence: None)
  Receive Date: 20050427
  Receipt Date: 20050120
  Transmission Date: 20051028
  Serious: No
  Sender: FDA-Public Use
  Company Number: US-BRISTOL-MYERS SQUIBB COMPANY-12833539

PATIENT
  Age: 92 Year
  Sex: Female

DRUGS (1)
  1. CAPTOPRIL [Suspect]
     Route: 048
     Dates: start: 20041101

REACTIONS (2)
  - GOUTY ARTHRITIS [None]
  - NAIL DISORDER [None]
